FAERS Safety Report 9223663 (Version 1)
Quarter: 2013Q2

REPORT INFORMATION
  Report Type: Spontaneous
  Country: FR (occurrence: FR)
  Receive Date: 20130410
  Receipt Date: 20130410
  Transmission Date: 20140414
  Serious: Yes (Life-Threatening, Other)
  Sender: FDA-Public Use
  Company Number: FR-ELI_LILLY_AND_COMPANY-FR201304002229

PATIENT
  Age: 59 Year
  Sex: Female

DRUGS (2)
  1. OPTRUMA [Suspect]
     Indication: OSTEOPOROSIS PROPHYLAXIS
     Dosage: UNK
     Dates: start: 2007
  2. CALCIUM GLUCONATE [Concomitant]

REACTIONS (1)
  - Oligoastrocytoma [Unknown]
